FAERS Safety Report 7080918-4 (Version None)
Quarter: 2010Q4

REPORT INFORMATION
  Report Type: 
  Country: None (occurrence: None)
  Receive Date: 20101103
  Receipt Date: 20101029
  Transmission Date: 20110411
  Serious: Yes (Hospitalization)
  Sender: FDA-Public Use
  Company Number: DE-SANOFI-AVENTIS-2010SA064427

PATIENT
  Age: 53 Year
  Sex: Female

DRUGS (1)
  1. TAXOTERE [Suspect]
     Route: 041

REACTIONS (1)
  - CEREBROVASCULAR ACCIDENT [None]
